FAERS Safety Report 4421793-3 (Version None)
Quarter: 2004Q3

REPORT INFORMATION
  Report Type: 
  Country: None (occurrence: None)
  Receive Date: 20040806
  Receipt Date: 20040726
  Transmission Date: 20050211
  Serious: Yes (Death, Hospitalization)
  Sender: FDA-Public Use
  Company Number: CIP04001641

PATIENT
  Age: 60 Year
  Sex: Female

DRUGS (8)
  1. FURADANTIN [Suspect]
     Dosage: 3 DOSES DAILY, ORAL
     Route: 048
     Dates: end: 20040630
  2. GLUCOPHAGE [Suspect]
     Dosage: 3000 MG DAILY, ORAL
     Route: 048
     Dates: end: 20040630
  3. OFLOXACIN [Suspect]
     Dosage: 2 DOSES DAILY, ORAL
     Route: 048
     Dates: end: 20040630
  4. RIFAMPICIN [Suspect]
     Dosage: 6 DOSES DAILY, ORAL
     Route: 048
     Dates: end: 20040630
  5. HYPERIUM(RILMENIDINE) [Concomitant]
     Dosage: 2 DOSES DAILY, ORAL
     Route: 048
     Dates: end: 20040630
  6. NEURONTIN [Suspect]
     Dosage: 2 DOSES DAILY, ORAL
     Route: 048
     Dates: end: 20040630
  7. APROVEL(IRBESARTAN) [Suspect]
     Dates: end: 20040630
  8. FERRITIN(FERRITIN) [Suspect]

REACTIONS (8)
  - CARDIAC ARREST [None]
  - EPILEPSY [None]
  - HEPATIC FAILURE [None]
  - HEPATOCELLULAR DAMAGE [None]
  - KETOSIS [None]
  - LACTIC ACIDOSIS [None]
  - RESPIRATORY DISTRESS [None]
  - SEPTIC SHOCK [None]
